FAERS Safety Report 20376126 (Version 1)
Quarter: 2022Q1

REPORT INFORMATION
  Report Type: Spontaneous
  Country: GB (occurrence: GB)
  Receive Date: 20220125
  Receipt Date: 20220125
  Transmission Date: 20220423
  Serious: Yes (Other)
  Sender: FDA-Public Use
  Company Number: GB-JNJFOC-20220119241

PATIENT
  Age: 26 Year
  Sex: Male

DRUGS (7)
  1. RITUXIMAB [Suspect]
     Active Substance: RITUXIMAB
  2. IMBRUVICA [Suspect]
     Active Substance: IBRUTINIB
     Indication: Chronic lymphocytic leukaemia
     Route: 065
     Dates: start: 201507
  3. VENETOCLAX [Suspect]
     Active Substance: VENETOCLAX
     Dates: start: 202110
  4. ACYCLOVIR [Concomitant]
     Active Substance: ACYCLOVIR
  5. PENTAMIDINE [Concomitant]
     Active Substance: PENTAMIDINE
  6. SULFAMETHOXAZOLE [Concomitant]
     Active Substance: SULFAMETHOXAZOLE
  7. TRIMETHOPRIM [Concomitant]
     Active Substance: TRIMETHOPRIM

REACTIONS (4)
  - Chronic lymphocytic leukaemia [Unknown]
  - Disease progression [Unknown]
  - Upper respiratory tract infection [Unknown]
  - Lymphocytosis [Unknown]

NARRATIVE: CASE EVENT DATE: 20210401
